FAERS Safety Report 10161758 (Version 1)
Quarter: 2014Q2

REPORT INFORMATION
  Report Type: Not Available
  Country: US (occurrence: US)
  Receive Date: 20140509
  Receipt Date: 20140509
  Transmission Date: 20141212
  Serious: Yes (Other)
  Sender: FDA-Public Use
  Company Number: US-LUPIN PHARMACEUTICALS INC.-E2B_00001985

PATIENT
  Age: 50 Year
  Sex: Female
  Weight: 71.28 kg

DRUGS (4)
  1. SIMVASTATIN TABLETS USP 20 MG [Suspect]
     Indication: HYPERCHOLESTEROLAEMIA
  2. PANTOPRAZOLE [Concomitant]
     Indication: ABDOMINAL DISCOMFORT
  3. NASONEX [Concomitant]
     Indication: HYPERSENSITIVITY
     Route: 045
  4. TOLTERODINE [Concomitant]
     Indication: BLADDER DISORDER

REACTIONS (1)
  - Coeliac disease [Not Recovered/Not Resolved]
